FAERS Safety Report 16174553 (Version 4)
Quarter: 2019Q2

REPORT INFORMATION
  Report Type: Spontaneous
  Country: US (occurrence: US)
  Receive Date: 20190409
  Receipt Date: 20190626
  Transmission Date: 20190711
  Serious: Yes (Other)
  Sender: FDA-Public Use
  Company Number: US-PFIZER INC-2019142512

PATIENT
  Age: 81 Year
  Sex: Female
  Weight: 58.6 kg

DRUGS (4)
  1. PREMARIN [Suspect]
     Active Substance: ESTROGENS, CONJUGATED
     Dosage: A PEA SIZED AMOUNT TO VAGINAL A WEEK AS A 3 TO 4 TIMES A WEEK
     Route: 067
     Dates: start: 201904
  2. WARFARIN [Suspect]
     Active Substance: WARFARIN
     Dosage: UNK
     Dates: end: 201612
  3. PREMARIN [Suspect]
     Active Substance: ESTROGENS, CONJUGATED
     Indication: VAGINAL HAEMORRHAGE
     Dosage: UNK, WEEKLY (ABOUT ONCE WEEKLY)
     Route: 067
  4. PREMARIN [Suspect]
     Active Substance: ESTROGENS, CONJUGATED
     Indication: VULVOVAGINAL DRYNESS
     Dosage: UNK, 2 OR 3 TIMES WEEKLY, BUT SHE THINKS SHE ONLY USED IT AT THAT FREQUENCY ABOUT TWICE
     Route: 067
     Dates: start: 2016

REACTIONS (2)
  - Product use issue [Unknown]
  - Subarachnoid haemorrhage [Unknown]

NARRATIVE: CASE EVENT DATE: 2016
